FAERS Safety Report 18231502 (Version 1)
Quarter: 2020Q3

REPORT INFORMATION
  Report Type: Spontaneous
  Country: US (occurrence: US)
  Receive Date: 20200904
  Receipt Date: 20200904
  Transmission Date: 20201103
  Serious: Yes (Other)
  Sender: FDA-Public Use
  Company Number: US-TEVA-2020-US-1823808

PATIENT
  Age: 60 Year
  Sex: Female

DRUGS (2)
  1. AUSTEDO [Suspect]
     Active Substance: DEUTETRABENAZINE
     Indication: TARDIVE DYSKINESIA
     Dosage: DAILY X1 WEEK, THEN TWICE DAILY. UNKNOWN THERAPY START DATE.SHIPPED 20?FEB?2020.
     Route: 048
     Dates: end: 2020
  2. FORTEO [Concomitant]
     Active Substance: TERIPARATIDE

REACTIONS (5)
  - Impaired healing [Not Recovered/Not Resolved]
  - Pain [Unknown]
  - Meniscus injury [Unknown]
  - Lower limb fracture [Not Recovered/Not Resolved]
  - Surgery [Unknown]

NARRATIVE: CASE EVENT DATE: 201912
